FAERS Safety Report 8487961-9 (Version None)
Quarter: 2012Q3

REPORT INFORMATION
  Report Type: 
  Country: None (occurrence: None)
  Receive Date: 20120705
  Receipt Date: 20120626
  Transmission Date: 20120928
  Serious: Yes (Hospitalization)
  Sender: FDA-Public Use
  Company Number: US-BAYER-2012-062923

PATIENT
  Age: 36 Year
  Sex: Female
  Weight: 113.38 kg

DRUGS (18)
  1. BETASERON [Concomitant]
     Dosage: 1 ML, EVERY OTHER DAY
     Route: 058
  2. TOPAMAX [Concomitant]
     Indication: MULTIPLE SCLEROSIS
  3. METHYLPREDNISOLONE [Concomitant]
     Dosage: 4 MG, UNK
     Route: 048
  4. SKELAXIN [Concomitant]
     Dosage: 800 MG, UNK
     Route: 048
  5. DEPO-PROVERA [Concomitant]
     Indication: MENSTRUAL CYCLE MANAGEMENT
     Dosage: UNK
     Dates: start: 20090101
  6. CIPROFLOXACIN HCL [Concomitant]
     Indication: URINARY TRACT INFECTION
     Dosage: 500 MG, UNK
     Route: 048
  7. YAZ [Suspect]
     Indication: MENSTRUAL CYCLE MANAGEMENT
     Dosage: UNK
     Dates: start: 20090226, end: 20090915
  8. LEXAPRO [Concomitant]
     Dosage: 20 MG, DAILY
     Route: 048
  9. LYRICA [Concomitant]
     Indication: NEURALGIA
     Dosage: 75 MG, UNK
     Route: 048
     Dates: start: 20090224, end: 20090410
  10. SANCTURA [Concomitant]
     Dosage: 60 MG, DAILY
     Route: 048
  11. OXYTROL [Concomitant]
     Dosage: 3.9 MG, Q72HR
     Route: 061
  12. ROPINIROLE HYDROCHLORIDE [Concomitant]
     Dosage: 3 MG, UNK
     Route: 048
  13. MECLIZINE HCL [Concomitant]
     Dosage: 25 MG, UNK
     Route: 048
  14. NEURONTIN [Concomitant]
     Dosage: 300 MG, TID
     Route: 048
  15. TOPAMAX [Concomitant]
     Indication: CONVULSION
     Dosage: 100 MG, UNK
     Route: 048
  16. OXYCODONE AND ACETAMINOPHEN [Concomitant]
     Dosage: 10 MG +#8211; 325 MG, Q4HR
     Route: 048
  17. ALPRAZOLAM [Concomitant]
     Dosage: 2 MG, QID
     Route: 048
  18. NITROFURANT MACRO [Concomitant]
     Indication: PROPHYLAXIS URINARY TRACT INFECTION
     Dosage: 100 MG, UNK
     Route: 048

REACTIONS (5)
  - DEEP VEIN THROMBOSIS [None]
  - PAIN IN EXTREMITY [None]
  - PAIN [None]
  - OEDEMA PERIPHERAL [None]
  - INJURY [None]
